FAERS Safety Report 21558212 (Version 2)
Quarter: 2023Q1

REPORT INFORMATION
  Report Type: Report from Study
  Country: US (occurrence: US)
  Receive Date: 20221107
  Receipt Date: 20230216
  Transmission Date: 20230418
  Serious: No
  Sender: FDA-Public Use
  Company Number: US-002147023-NVSC2022US249286

PATIENT
  Age: 54 Year
  Sex: Male

DRUGS (2)
  1. GLATOPA [Suspect]
     Active Substance: GLATIRAMER ACETATE
     Indication: Multiple sclerosis
     Dosage: 40 MG, EVERY 48 HOURS
     Route: 058
     Dates: start: 20201001
  2. GLATOPA [Suspect]
     Active Substance: GLATIRAMER ACETATE
     Dosage: 20 MILLIGRAM PER MILLILITRE, 1ML FOR  ONE EACH SUBCUTANEOUS INJECTION ONLY
     Route: 058

REACTIONS (4)
  - Fatigue [Unknown]
  - Injection site haemorrhage [Unknown]
  - Device mechanical issue [Unknown]
  - Device issue [Unknown]

NARRATIVE: CASE EVENT DATE: 20221001
